FAERS Safety Report 16496488 (Version 1)
Quarter: 2019Q2

REPORT INFORMATION
  Report Type: Spontaneous
  Country: US (occurrence: US)
  Receive Date: 20190628
  Receipt Date: 20190628
  Transmission Date: 20190711
  Serious: Yes (Hospitalization)
  Sender: FDA-Public Use
  Company Number: US-PFIZER INC-2019207471

PATIENT
  Age: 66 Year
  Sex: Female

DRUGS (2)
  1. LYRICA [Suspect]
     Active Substance: PREGABALIN
     Dosage: 75, MG DAILY [1 DF, DAILY (1 A DAY I USED TO TAKE 2 BUT NOW ONLY 1)]
     Route: 048
     Dates: start: 20161116
  2. LYRICA [Suspect]
     Active Substance: PREGABALIN
     Dosage: 150, MG [2 DF, DAILY (USED TO TAKE 2)]

REACTIONS (2)
  - Intentional product use issue [Unknown]
  - Femur fracture [Unknown]

NARRATIVE: CASE EVENT DATE: 20190311
